FAERS Safety Report 9011158 (Version 1)
Quarter: 2013Q1

REPORT INFORMATION
  Report Type: Spontaneous
  Country: FR (occurrence: FR)
  Receive Date: 20130109
  Receipt Date: 20130109
  Transmission Date: 20140127
  Serious: Yes (Other)
  Sender: FDA-Public Use
  Company Number: FR-PFIZER INC-2013002337

PATIENT
  Age: 27 Year
  Sex: Female

DRUGS (1)
  1. VFEND [Suspect]
     Indication: BRONCHOPULMONARY ASPERGILLOSIS
     Dosage: UNK
     Route: 048
     Dates: start: 2004, end: 201010

REACTIONS (6)
  - Erythema [Recovering/Resolving]
  - Photosensitivity reaction [Recovering/Resolving]
  - Solar dermatitis [Recovering/Resolving]
  - Lentigo [Not Recovered/Not Resolved]
  - Actinic keratosis [Not Recovered/Not Resolved]
  - Skin atrophy [Not Recovered/Not Resolved]
